FAERS Safety Report 17772083 (Version 1)
Quarter: 2020Q2

REPORT INFORMATION
  Report Type: Spontaneous
  Country: US (occurrence: US)
  Receive Date: 20200512
  Receipt Date: 20200512
  Transmission Date: 20200714
  Serious: Yes (Other)
  Sender: FDA-Public Use
  Company Number: US-NOVOPROD-727294

PATIENT
  Age: 88 Year
  Sex: Male

DRUGS (1)
  1. VICTOZA [Suspect]
     Active Substance: LIRAGLUTIDE
     Indication: PRODUCT USED FOR UNKNOWN INDICATION
     Dosage: UNK
     Route: 058

REACTIONS (7)
  - Decreased appetite [Unknown]
  - Cardiac failure congestive [Unknown]
  - Circulatory collapse [Unknown]
  - Memory impairment [Unknown]
  - Rash [Unknown]
  - Cardiac disorder [Unknown]
  - Blood glucose increased [Unknown]
